FAERS Safety Report 7202380-0 (Version None)
Quarter: 2010Q4

REPORT INFORMATION
  Report Type: 
  Country: None (occurrence: None)
  Receive Date: 20101229
  Receipt Date: 20101223
  Transmission Date: 20110411
  Serious: No
  Sender: FDA-Public Use
  Company Number: US-PFIZER INC-2009221009

PATIENT
  Sex: Female
  Weight: 73 kg

DRUGS (8)
  1. CHANTIX [Suspect]
     Indication: SMOKING CESSATION THERAPY
     Dosage: 0.5 MG, 1X/DAY
     Route: 048
     Dates: start: 20090516
  2. CHANTIX [Suspect]
     Dosage: 0.5 MG, 1X/DAY
     Route: 048
     Dates: start: 20100101, end: 20100101
  3. KLONOPIN [Concomitant]
     Indication: ANXIETY DISORDER
     Dosage: 1 MG, 2X/DAY
     Dates: start: 20090501
  4. BUPROPION [Concomitant]
     Indication: SMOKING CESSATION THERAPY
     Dosage: THE MAXIMUM DOSE ONE EVERY MORNING
     Dates: start: 20090501
  5. LORATADINE [Concomitant]
     Dosage: UNK
  6. FISH OIL [Concomitant]
     Dosage: UNK
  7. LOVAZA [Concomitant]
     Dosage: UNK
  8. OXYCODONE AND ACETAMINOPHEN [Concomitant]
     Indication: BACK PAIN
     Dosage: 5 MG, AS NEEDED

REACTIONS (6)
  - DECREASED APPETITE [None]
  - HEADACHE [None]
  - NAUSEA [None]
  - PAROSMIA [None]
  - VOMITING [None]
  - WEIGHT DECREASED [None]
